FAERS Safety Report 17439454 (Version 1)
Quarter: 2020Q1

REPORT INFORMATION
  Report Type: Spontaneous
  Country: CA (occurrence: CA)
  Receive Date: 20200220
  Receipt Date: 20200220
  Transmission Date: 20200409
  Serious: Yes (Other)
  Sender: FDA-Public Use
  Company Number: CA-HETERO-HET2020CA00180

PATIENT
  Sex: Female

DRUGS (3)
  1. INDOMETHACIN. [Suspect]
     Active Substance: INDOMETHACIN
     Dosage: 300 MG, QD (MAXIMUM DOSE)
     Route: 048
  2. INDOMETHACIN. [Suspect]
     Active Substance: INDOMETHACIN
     Indication: EBSTEIN^S ANOMALY
     Dosage: 25 MG, QID
     Route: 048
  3. INDOMETHACIN. [Suspect]
     Active Substance: INDOMETHACIN
     Dosage: 100 UNK
     Route: 054

REACTIONS (2)
  - Oligohydramnios [Unknown]
  - Exposure during pregnancy [Unknown]
